FAERS Safety Report 5528713-9 (Version None)
Quarter: 2007Q4

REPORT INFORMATION
  Report Type: 
  Country: None (occurrence: None)
  Receive Date: 20071129
  Receipt Date: 20071105
  Transmission Date: 20080405
  Serious: No
  Sender: FDA-Public Use
  Company Number: US-JNJFOC-20071102194

PATIENT
  Age: 45 Year
  Sex: Female

DRUGS (4)
  1. INVEGA [Suspect]
     Indication: SCHIZOPHRENIA
     Route: 048
  2. LYRICA [Concomitant]
     Route: 048
  3. DEPAKOTE [Concomitant]
     Route: 048
  4. CYMBALTA [Concomitant]

REACTIONS (2)
  - AMENORRHOEA [None]
  - NIGHT SWEATS [None]
